FAERS Safety Report 15814861 (Version 1)
Quarter: 2019Q1

REPORT INFORMATION
  Report Type: Report from Study
  Country: ES (occurrence: ES)
  Receive Date: 20190111
  Receipt Date: 20190111
  Transmission Date: 20190417
  Serious: Yes (Other)
  Sender: FDA-Public Use
  Company Number: ES-ACCORD-101605

PATIENT
  Age: 15 Month
  Sex: Female

DRUGS (10)
  1. ETOPOSIDE. [Suspect]
     Active Substance: ETOPOSIDE
     Indication: PRECURSOR T-LYMPHOBLASTIC LYMPHOMA/LEUKAEMIA
     Dosage: 30 MG INFUSION IN 3 HOURS
     Route: 042
     Dates: start: 20170114, end: 20170118
  2. CYCLOPHOSPHAMIDE. [Suspect]
     Active Substance: CYCLOPHOSPHAMIDE
     Indication: PRECURSOR T-LYMPHOBLASTIC LYMPHOMA/LEUKAEMIA
     Dosage: 130 MG EVERY 24 HOURS
     Dates: start: 20170114, end: 20170118
  3. PANTOPRAZOLE [Concomitant]
     Active Substance: PANTOPRAZOLE
     Dosage: 10 MG C/24 HOURS
     Dates: start: 20170113, end: 20170204
  4. SULFAMETHOXAZOLE/TRIMETHOPRIM [Concomitant]
     Dosage: 20 MG EVERY 12 HOURS MONDAY, WEDNESDAY AND FRIDAY
     Dates: start: 20170113, end: 20170204
  5. METAMIZOLE SODIUM [Concomitant]
     Active Substance: METAMIZOLE SODIUM
     Dosage: 1 CC C/6-8 HOURS
     Dates: start: 20170113, end: 20170204
  6. MESNA. [Suspect]
     Active Substance: MESNA
     Indication: PRODUCT USED FOR UNKNOWN INDICATION
     Dosage: 50 MG BEFORE, AT 4 HOURS AND AT 8 HOURS OF THE DOSE OF CYCLOPHOSPHAMIDE
     Dates: start: 20170114, end: 20170118
  7. KETAMINE [Concomitant]
     Active Substance: KETAMINE
     Dosage: 10 MG
     Dates: start: 20170113, end: 20170204
  8. LEVETIRACETAM. [Concomitant]
     Active Substance: LEVETIRACETAM
     Dosage: 130 MG EVERY 12 HOURS
     Dates: start: 20170113, end: 20170204
  9. PARACETAMOL [Concomitant]
     Active Substance: ACETAMINOPHEN
     Dosage: 80 MG EVERY 6-8 HOURS IF NEEDED
     Dates: start: 20170113, end: 20170204
  10. MIDAZOLAM [Concomitant]
     Active Substance: MIDAZOLAM HYDROCHLORIDE
     Dosage: 2 MG
     Dates: start: 20170113, end: 20170204

REACTIONS (2)
  - Off label use [Unknown]
  - Hepatitis [Recovered/Resolved]

NARRATIVE: CASE EVENT DATE: 20170116
